FAERS Safety Report 15234969 (Version 1)
Quarter: 2018Q3

REPORT INFORMATION
  Report Type: Report from Study
  Country: DE (occurrence: DE)
  Receive Date: 20180803
  Receipt Date: 20180803
  Transmission Date: 20181010
  Serious: Yes (Hospitalization, Other)
  Sender: FDA-Public Use
  Company Number: DE-BRISTOL-MYERS SQUIBB COMPANY-BMS-2018-071633

PATIENT
  Age: 61 Year
  Sex: Male

DRUGS (1)
  1. BLINDED IPILIMUMAB [Suspect]
     Active Substance: IPILIMUMAB
     Indication: METASTATIC MALIGNANT MELANOMA
     Dosage: UNK
     Route: 065
     Dates: start: 201401

REACTIONS (4)
  - Autoimmune colitis [Unknown]
  - Colitis ulcerative [Unknown]
  - Gastritis [Unknown]
  - Cytomegalovirus colitis [Unknown]

NARRATIVE: CASE EVENT DATE: 201404
